FAERS Safety Report 14312449 (Version 1)
Quarter: 2017Q4

REPORT INFORMATION
  Report Type: Spontaneous
  Country: US (occurrence: US)
  Receive Date: 20171221
  Receipt Date: 20171221
  Transmission Date: 20180321
  Serious: No
  Sender: FDA-Public Use
  Company Number: US-PFIZER INC-2017539263

PATIENT
  Age: 8 Year
  Sex: Female

DRUGS (2)
  1. TOFACITINIB [Suspect]
     Active Substance: TOFACITINIB
     Indication: ALOPECIA AREATA
  2. TOFACITINIB [Suspect]
     Active Substance: TOFACITINIB
     Indication: AUTONOMIC DYSREFLEXIA
     Dosage: UNK

REACTIONS (3)
  - Therapeutic response unexpected [Unknown]
  - Hair growth abnormal [Unknown]
  - Product use in unapproved indication [Unknown]
